FAERS Safety Report 13848627 (Version 1)
Quarter: 2017Q3

REPORT INFORMATION
  Report Type: Spontaneous
  Country: US (occurrence: US)
  Receive Date: 20170809
  Receipt Date: 20170809
  Transmission Date: 20171127
  Serious: No
  Sender: FDA-Public Use
  Company Number: None

PATIENT

DRUGS (2)
  1. PRIVIGEN [Suspect]
     Active Substance: HUMAN IMMUNOGLOBULIN G
     Dosage: DOSAGE FORM - LIQUID?TYPE SINGLE USE VIAL?SIZE - 100 ML
     Route: 042
  2. ALBURX [Suspect]
     Active Substance: ALBUMIN HUMAN
     Dosage: DOSAGE FORM - SOLUTION?SIZE - 100 ML
     Route: 042

REACTIONS (2)
  - Product packaging confusion [None]
  - Product selection error [None]
